FAERS Safety Report 5262684-8 (Version None)
Quarter: 2007Q1

REPORT INFORMATION
  Report Type: 
  Country: None (occurrence: None)
  Receive Date: 20070312
  Receipt Date: 20070302
  Transmission Date: 20070707
  Serious: Yes (Other)
  Sender: FDA-Public Use
  Company Number: US-MERCK-0702USA02919

PATIENT
  Age: 59 Year
  Sex: Female
  Weight: 86 kg

DRUGS (9)
  1. FOSAMAX [Suspect]
     Indication: OSTEOPOROSIS
     Route: 048
     Dates: start: 19980301
  2. FOSAMAX [Suspect]
     Route: 048
     Dates: end: 20070125
  3. FOSAMAX [Suspect]
     Indication: SPINAL COMPRESSION FRACTURE
     Route: 048
     Dates: start: 19980301
  4. FOSAMAX [Suspect]
     Route: 048
     Dates: end: 20070125
  5. SYNTHROID [Concomitant]
     Route: 048
     Dates: start: 19980101
  6. EFFEXOR XR [Concomitant]
     Route: 048
     Dates: start: 19980101
  7. CARDIZEM CD [Concomitant]
     Route: 048
     Dates: start: 19980101
  8. GUAIFENESIN [Concomitant]
     Route: 048
     Dates: start: 19980101
  9. DAYPRO [Concomitant]
     Route: 048
     Dates: start: 19980101

REACTIONS (3)
  - GINGIVAL DISORDER [None]
  - GINGIVAL RECESSION [None]
  - OSTEONECROSIS [None]
